FAERS Safety Report 8336305-1 (Version None)
Quarter: 2012Q2

REPORT INFORMATION
  Report Type: 
  Country: None (occurrence: None)
  Receive Date: 20120504
  Receipt Date: 20120425
  Transmission Date: 20120825
  Serious: Yes (Hospitalization, Disabling, Other)
  Sender: FDA-Public Use
  Company Number: PHHY2012BR010116

PATIENT
  Sex: Female

DRUGS (11)
  1. SIMVACOR [Concomitant]
     Indication: BLOOD VISCOSITY INCREASED
     Dosage: 40 MG, UNK
  2. RABEPRAZOLE SODIUM [Concomitant]
     Indication: ABDOMINAL DISCOMFORT
  3. ATRILON [Concomitant]
     Indication: CHONDROPATHY
  4. INDAPEN [Concomitant]
     Indication: BLOOD PRESSURE
  5. CORTISONE ACETATE [Concomitant]
     Indication: DYSPNOEA
  6. SPIRIVA [Concomitant]
  7. FORMOTEROL FUMARATE [Suspect]
     Indication: CHRONIC OBSTRUCTIVE PULMONARY DISEASE
     Dates: end: 20120424
  8. SINGULAIR [Concomitant]
  9. XOLAIR [Suspect]
     Indication: DYSPNOEA
     Dosage: 150 MG, ONCE MONTHLY
     Route: 058
  10. FLUTICASONE PROPIONATE/SALMETEROL [Concomitant]
  11. BAMIFIX [Concomitant]

REACTIONS (12)
  - ASTHMA [None]
  - PULMONARY CONGESTION [None]
  - PAIN [None]
  - SPUTUM ABNORMAL [None]
  - ANKLE FRACTURE [None]
  - DIVERTICULITIS [None]
  - ABDOMINAL PAIN UPPER [None]
  - LUNG INFECTION [None]
  - MIGRAINE [None]
  - FALL [None]
  - FIBROMYALGIA [None]
  - DYSPNOEA [None]
